FAERS Safety Report 10074015 (Version 2)
Quarter: 2014Q2

REPORT INFORMATION
  Report Type: Spontaneous
  Country: US (occurrence: US)
  Receive Date: 20140411
  Receipt Date: 20140423
  Transmission Date: 20141212
  Serious: Yes (Hospitalization)
  Sender: FDA-Public Use
  Company Number: US-MALLINCKRODT-T201401783

PATIENT
  Age: 53 Year
  Sex: Female

DRUGS (1)
  1. SODIUM IODIDE (I 131) [Suspect]
     Indication: RADIOACTIVE IODINE THERAPY
     Dosage: 2 TREATMENTS OF 400 MBQ, UNK
     Route: 065

REACTIONS (4)
  - Hungry bone syndrome [Recovered/Resolved]
  - Hypocalcaemia [Recovered/Resolved]
  - Hyperphosphataemia [Recovering/Resolving]
  - Hypothyroidism [Recovered/Resolved]
